FAERS Safety Report 5530148-X (Version None)
Quarter: 2007Q4

REPORT INFORMATION
  Report Type: 
  Country: None (occurrence: None)
  Receive Date: 20071130
  Receipt Date: 20071122
  Transmission Date: 20080405
  Serious: Yes (Other)
  Sender: FDA-Public Use
  Company Number: BR-JNJFOC-20071109476

PATIENT
  Age: 37 Year
  Sex: Male
  Weight: 94 kg

DRUGS (3)
  1. TYLENOL [Suspect]
     Indication: TOOTH DISORDER
     Route: 048
  2. TYLENOL [Suspect]
     Indication: GINGIVITIS
     Route: 048
  3. DORFLEX [Concomitant]

REACTIONS (7)
  - COUGH [None]
  - DIZZINESS [None]
  - DYSGEUSIA [None]
  - DYSPNOEA [None]
  - HEADACHE [None]
  - NAUSEA [None]
  - VOMITING [None]
